FAERS Safety Report 5836497-X (Version None)
Quarter: 2008Q3

REPORT INFORMATION
  Report Type: 
  Country: None (occurrence: None)
  Receive Date: 20080806
  Receipt Date: 20080806
  Transmission Date: 20090109
  Serious: No
  Sender: FDA-Public Use
  Company Number: None

PATIENT
  Age: 54 Year
  Sex: Male
  Weight: 65.8 kg

DRUGS (1)
  1. LISINOPRIL AND HYDROCHLOROTHIAZIDE [Suspect]
     Indication: HYPERTENSION
     Dosage: 12.5/20 MG EVERY DAY PO
     Route: 048
     Dates: start: 20071210, end: 20080801

REACTIONS (3)
  - ANGIOEDEMA [None]
  - LIP SWELLING [None]
  - SWELLING FACE [None]
